FAERS Safety Report 5594170-X (Version None)
Quarter: 2008Q1

REPORT INFORMATION
  Report Type: 
  Country: None (occurrence: None)
  Receive Date: 20080115
  Receipt Date: 20071231
  Transmission Date: 20080703
  Serious: Yes (Life-Threatening, Other)
  Sender: FDA-Public Use
  Company Number: S07-USA-05498-01

PATIENT
  Age: 25 Year
  Sex: Male
  Weight: 113.3993 kg

DRUGS (6)
  1. LEXAPRO [Suspect]
     Indication: DEPRESSION
     Dosage: 0.5 MG TID
     Dates: start: 20070201, end: 20070101
  2. XANAX [Suspect]
     Indication: DEPRESSION
     Dosage: 0.5 MG TID
     Dates: start: 20070309, end: 20070321
  3. XANAX [Suspect]
     Indication: DEPRESSION
     Dosage: 0.25 MG TID
     Dates: start: 20070216, end: 20070101
  4. PEXEVA (PAROXETINE) [Concomitant]
  5. RISPERDAL [Concomitant]
  6. LITHIUM CARBONATE [Concomitant]

REACTIONS (5)
  - DEPRESSION [None]
  - OVERDOSE [None]
  - ROAD TRAFFIC ACCIDENT [None]
  - SUICIDAL IDEATION [None]
  - SUICIDE ATTEMPT [None]
